FAERS Safety Report 9565410 (Version 2)
Quarter: 2016Q3

REPORT INFORMATION
  Report Type: Spontaneous
  Country: CA (occurrence: CA)
  Receive Date: 20130930
  Receipt Date: 20160721
  Transmission Date: 20161109
  Serious: Yes (Other)
  Sender: FDA-Public Use
  Company Number: CA-009507513-1309CAN013503

PATIENT
  Age: 54 Year
  Sex: Female

DRUGS (9)
  1. XALATAN [Concomitant]
     Active Substance: LATANOPROST
     Dosage: SINCE SPRING 2012
     Route: 065
     Dates: start: 2012
  2. IRON (UNSPECIFIED) [Concomitant]
     Active Substance: IRON
     Route: 065
  3. FOLIC ACID. [Concomitant]
     Active Substance: FOLIC ACID
     Route: 065
  4. THYROID [Concomitant]
     Active Substance: LEVOTHYROXINE\LIOTHYRONINE
     Route: 065
  5. TIMOPTIC-XE [Suspect]
     Active Substance: TIMOLOL MALEATE
     Dosage: 1 GTT, DAILY
     Route: 065
     Dates: start: 201210, end: 20121029
  6. METHOTREXATE. [Concomitant]
     Active Substance: METHOTREXATE
     Dosage: WEEKLY
     Route: 065
  7. TIMOPTIC-XE [Suspect]
     Active Substance: TIMOLOL MALEATE
     Indication: GLAUCOMA
     Dosage: 1 GTT, QD
     Route: 065
     Dates: start: 20121011, end: 201210
  8. PLAQUENIL [Concomitant]
     Active Substance: HYDROXYCHLOROQUINE SULFATE
     Dosage: WEEKLY
     Route: 065
  9. SULFASALAZINE. [Concomitant]
     Active Substance: SULFASALAZINE
     Route: 065

REACTIONS (1)
  - Back pain [Unknown]

NARRATIVE: CASE EVENT DATE: 20121015
